FAERS Safety Report 5760140-1 (Version None)
Quarter: 2008Q2

REPORT INFORMATION
  Report Type: 
  Country: None (occurrence: None)
  Receive Date: 20080605
  Receipt Date: 20080522
  Transmission Date: 20081010
  Serious: No
  Sender: FDA-Public Use
  Company Number: US-BOEHRINGER INGELHEIM GMBH, GERMANY-2008-BP-05562BP

PATIENT
  Age: 75 Year
  Sex: Male
  Weight: 81 kg

DRUGS (11)
  1. FLOMAX [Suspect]
     Indication: BENIGN PROSTATIC HYPERPLASIA
     Dates: start: 20060601
  2. FLOMAX [Suspect]
     Indication: URINARY INCONTINENCE
     Route: 048
  3. FLOMAX [Suspect]
     Indication: URINARY RETENTION
  4. FLOMAX [Suspect]
     Indication: URINARY HESITATION
  5. FLOMAX [Suspect]
     Indication: URINE OUTPUT DECREASED
  6. FLOMAX [Suspect]
     Indication: URINE FLOW DECREASED
  7. INDERAL [Concomitant]
  8. LANOXIN [Concomitant]
  9. COUMADIN [Concomitant]
  10. XANAX [Concomitant]
  11. VICODIN ES [Concomitant]

REACTIONS (7)
  - ABDOMINAL PAIN UPPER [None]
  - BACK PAIN [None]
  - DRUG INEFFECTIVE [None]
  - GROIN PAIN [None]
  - SCROTAL SWELLING [None]
  - TESTICULAR SWELLING [None]
  - URINARY INCONTINENCE [None]
